FAERS Safety Report 10915932 (Version 1)
Quarter: 2015Q1

REPORT INFORMATION
  Report Type: Spontaneous
  Country: US (occurrence: None)
  Receive Date: 20150311
  Receipt Date: 20150311
  Transmission Date: 20150721
  Serious: No
  Sender: FDA-Public Use
  Company Number: None

PATIENT
  Age: 90 Year
  Sex: Male
  Weight: 74.84 kg

DRUGS (9)
  1. METHOTREXATE [Concomitant]
     Active Substance: METHOTREXATE
  2. GLUCOSAMINE [Concomitant]
     Active Substance: GLUCOSAMINE
  3. LEVOFLOXACIN 750MG [Suspect]
     Active Substance: LEVOFLOXACIN
     Indication: PNEUMONIA
     Route: 048
     Dates: start: 20150202, end: 20150204
  4. FOLIC ACID. [Concomitant]
     Active Substance: FOLIC ACID
  5. VITAMIN B12 [Concomitant]
     Active Substance: CYANOCOBALAMIN
  6. CARVEDILOL. [Concomitant]
     Active Substance: CARVEDILOL
  7. FUROSEMIDE. [Concomitant]
     Active Substance: FUROSEMIDE
  8. CELEBREX [Concomitant]
     Active Substance: CELECOXIB
  9. MULTIVITAMIN [Concomitant]
     Active Substance: VITAMINS

REACTIONS (4)
  - Gait disturbance [None]
  - Pain in extremity [None]
  - Rash [None]
  - Asthenia [None]

NARRATIVE: CASE EVENT DATE: 20150204
